FAERS Safety Report 5698563-1 (Version None)
Quarter: 2008Q2

REPORT INFORMATION
  Report Type: 
  Country: None (occurrence: None)
  Receive Date: 20080408
  Receipt Date: 20070221
  Transmission Date: 20081010
  Serious: Yes (Death, Hospitalization, Other)
  Sender: FDA-Public Use
  Company Number: US-BAYER-US-2006-024422

PATIENT
  Age: 53 Year
  Sex: Female
  Weight: 91 kg

DRUGS (7)
  1. CLIMARA [Suspect]
     Indication: MENOPAUSE
     Route: 062
     Dates: start: 19980101, end: 19980101
  2. PREMPRO [Suspect]
     Indication: MENOPAUSE
     Dates: start: 19970101, end: 19970101
  3. MEDROXYPROGESTERONE [Suspect]
     Indication: MENOPAUSE
     Dates: start: 19980101, end: 20000101
  4. PROVERA [Suspect]
     Indication: MENOPAUSE
     Dates: start: 19980101, end: 19980101
  5. PREMARIN [Suspect]
     Indication: MENOPAUSE
     Dates: start: 19980101, end: 19990101
  6. KERLONE [Concomitant]
     Indication: TACHYCARDIA
  7. XANAX [Concomitant]

REACTIONS (4)
  - BREAST CANCER METASTATIC [None]
  - CEREBROVASCULAR ACCIDENT [None]
  - DEEP VEIN THROMBOSIS [None]
  - HEPATITIS [None]
